FAERS Safety Report 6167900-6 (Version None)
Quarter: 2009Q2

REPORT INFORMATION
  Report Type: 
  Country: None (occurrence: None)
  Receive Date: 20090427
  Receipt Date: 20090421
  Transmission Date: 20091009
  Serious: Yes (Other)
  Sender: FDA-Public Use
  Company Number: US-ASTRAZENECA-2009UW10039

PATIENT
  Age: 50 Year
  Sex: Male
  Weight: 76.7 kg

DRUGS (1)
  1. NEXIUM [Suspect]
     Route: 048
     Dates: start: 20090401

REACTIONS (4)
  - COUGH [None]
  - HYPERVENTILATION [None]
  - PRURITUS [None]
  - WEIGHT DECREASED [None]
